FAERS Safety Report 5111609-4 (Version None)
Quarter: 2006Q3

REPORT INFORMATION
  Report Type: 
  Country: None (occurrence: None)
  Receive Date: 20060920
  Receipt Date: 20060920
  Transmission Date: 20061208
  Serious: Yes (Life-Threatening, Hospitalization)
  Sender: FDA-Public Use
  Company Number: None

PATIENT
  Age: 89 Year
  Sex: 0
  Weight: 85 kg

DRUGS (1)
  1. HEPARIN INFUSIN 25, 000 UNITS IN 250 CC D5W B BRAUN [Suspect]
     Indication: ANTICOAGULANT THERAPY
     Dosage: IV DRIP
     Route: 041
     Dates: start: 20060523, end: 20060523

REACTIONS (9)
  - BLISTER [None]
  - CARDIO-RESPIRATORY ARREST [None]
  - ECCHYMOSIS [None]
  - FEELING COLD [None]
  - HEPARIN-INDUCED THROMBOCYTOPENIA [None]
  - INTRACARDIAC THROMBUS [None]
  - OEDEMA PERIPHERAL [None]
  - PAIN IN EXTREMITY [None]
  - PULSE ABSENT [None]
